FAERS Safety Report 5879567-2 (Version None)
Quarter: 2008Q3

REPORT INFORMATION
  Report Type: 
  Country: None (occurrence: None)
  Receive Date: 20080911
  Receipt Date: 20080911
  Transmission Date: 20090109
  Serious: Yes (Disabling, Other)
  Sender: FDA-Public Use
  Company Number: None

PATIENT
  Sex: Female
  Weight: 79.3795 kg

DRUGS (1)
  1. MORPHINE [Suspect]
     Indication: PAIN MANAGEMENT
     Dosage: 1 PILL 3 X'S PER DAY PO
     Route: 048
     Dates: start: 20040101, end: 20080908

REACTIONS (3)
  - GINGIVAL INFECTION [None]
  - TOOTH INJURY [None]
  - TOOTHACHE [None]
